FAERS Safety Report 10706274 (Version 2)
Quarter: 2015Q1

REPORT INFORMATION
  Report Type: Spontaneous
  Country: JP (occurrence: JP)
  Receive Date: 20150113
  Receipt Date: 20150205
  Transmission Date: 20150721
  Serious: Yes (Hospitalization)
  Sender: FDA-Public Use
  Company Number: JP-009507513-1501JPN003092

PATIENT

DRUGS (1)
  1. FOLLISTIM [Suspect]
     Active Substance: FOLLITROPIN
     Dosage: DAILY DOSAGE UNKNOWN
     Route: 051

REACTIONS (1)
  - Ascites [Unknown]

NARRATIVE: CASE EVENT DATE: 2010
